FAERS Safety Report 22050495 (Version 1)
Quarter: 2023Q1

REPORT INFORMATION
  Report Type: Spontaneous
  Country: GB (occurrence: GB)
  Receive Date: 20230301
  Receipt Date: 20230301
  Transmission Date: 20230418
  Serious: Yes (Other)
  Sender: FDA-Public Use
  Company Number: GB-MHRA-MED-202302242250509680-CFSTY

PATIENT
  Age: 28 Year
  Sex: Male
  Weight: 94 kg

DRUGS (2)
  1. PAXLOVID [Suspect]
     Active Substance: NIRMATRELVIR\RITONAVIR
     Indication: COVID-19 treatment
     Dosage: 150MG/100MG, 2X/DAY
     Dates: start: 20230221
  2. PLEGRIDY [Concomitant]
     Active Substance: PEGINTERFERON BETA-1A
     Indication: Multiple sclerosis
     Dosage: UNK

REACTIONS (5)
  - Haematochezia [Recovering/Resolving]
  - Dyschezia [Recovering/Resolving]
  - Taste disorder [Unknown]
  - Diarrhoea [Unknown]
  - Therapeutic response unexpected [Unknown]

NARRATIVE: CASE EVENT DATE: 20230223
